FAERS Safety Report 21759556 (Version 3)
Quarter: 2023Q1

REPORT INFORMATION
  Report Type: Report from Study
  Country: JP (occurrence: JP)
  Receive Date: 20221221
  Receipt Date: 20230103
  Transmission Date: 20230418
  Serious: Yes (Hospitalization)
  Sender: FDA-Public Use
  Company Number: JP-JNJFOC-20221235248

PATIENT
  Age: 25 Year
  Sex: Female
  Weight: 63 kg

DRUGS (48)
  1. STELARA [Suspect]
     Active Substance: USTEKINUMAB
     Indication: Crohn^s disease
     Route: 041
     Dates: start: 20200225, end: 20200225
  2. STELARA [Suspect]
     Active Substance: USTEKINUMAB
     Indication: Crohn^s disease
     Route: 058
     Dates: start: 20200421, end: 20200421
  3. STELARA [Suspect]
     Active Substance: USTEKINUMAB
     Indication: Crohn^s disease
     Route: 058
     Dates: start: 20200616, end: 20200616
  4. STELARA [Suspect]
     Active Substance: USTEKINUMAB
     Indication: Crohn^s disease
     Route: 058
     Dates: start: 20200811, end: 20200811
  5. STELARA [Suspect]
     Active Substance: USTEKINUMAB
     Indication: Crohn^s disease
     Route: 058
     Dates: start: 20201006, end: 20201006
  6. STELARA [Suspect]
     Active Substance: USTEKINUMAB
     Indication: Crohn^s disease
     Route: 058
     Dates: start: 20201208, end: 20201208
  7. STELARA [Suspect]
     Active Substance: USTEKINUMAB
     Indication: Crohn^s disease
     Route: 058
     Dates: start: 20210202, end: 20210202
  8. STELARA [Suspect]
     Active Substance: USTEKINUMAB
     Indication: Crohn^s disease
     Route: 058
     Dates: start: 20210330, end: 20210330
  9. STELARA [Suspect]
     Active Substance: USTEKINUMAB
     Indication: Crohn^s disease
     Route: 058
     Dates: start: 20210525, end: 20210525
  10. STELARA [Suspect]
     Active Substance: USTEKINUMAB
     Indication: Crohn^s disease
     Route: 058
     Dates: start: 20210720, end: 20210720
  11. STELARA [Suspect]
     Active Substance: USTEKINUMAB
     Indication: Crohn^s disease
     Route: 058
     Dates: start: 20210914, end: 20210914
  12. STELARA [Suspect]
     Active Substance: USTEKINUMAB
     Indication: Crohn^s disease
     Route: 058
     Dates: start: 20211109, end: 20211109
  13. STELARA [Suspect]
     Active Substance: USTEKINUMAB
     Indication: Crohn^s disease
     Route: 058
     Dates: start: 20220104, end: 20220104
  14. STELARA [Suspect]
     Active Substance: USTEKINUMAB
     Indication: Crohn^s disease
     Route: 058
     Dates: start: 20220301, end: 20220301
  15. STELARA [Suspect]
     Active Substance: USTEKINUMAB
     Indication: Crohn^s disease
     Route: 058
     Dates: start: 20220426, end: 20220426
  16. STELARA [Suspect]
     Active Substance: USTEKINUMAB
     Indication: Crohn^s disease
     Route: 058
     Dates: start: 20220621, end: 20220621
  17. STELARA [Suspect]
     Active Substance: USTEKINUMAB
     Indication: Crohn^s disease
     Route: 058
     Dates: start: 20220719, end: 20220719
  18. STELARA [Suspect]
     Active Substance: USTEKINUMAB
     Indication: Crohn^s disease
     Route: 058
     Dates: start: 20220816, end: 20220816
  19. STELARA [Suspect]
     Active Substance: USTEKINUMAB
     Indication: Crohn^s disease
     Route: 058
     Dates: start: 20220913, end: 20220913
  20. STELARA [Suspect]
     Active Substance: USTEKINUMAB
     Indication: Crohn^s disease
     Route: 058
     Dates: start: 20221011, end: 20221011
  21. PENTASA [Concomitant]
     Active Substance: MESALAMINE
     Indication: Crohn^s disease
     Route: 048
     Dates: start: 20170502, end: 20200330
  22. PENTASA [Concomitant]
     Active Substance: MESALAMINE
     Route: 048
     Dates: start: 20200331, end: 20200420
  23. PENTASA [Concomitant]
     Active Substance: MESALAMINE
     Route: 048
     Dates: start: 20200421, end: 20200615
  24. PENTASA [Concomitant]
     Active Substance: MESALAMINE
     Route: 048
     Dates: start: 20200616, end: 20200713
  25. PENTASA [Concomitant]
     Active Substance: MESALAMINE
     Route: 048
     Dates: start: 20200714, end: 20200810
  26. PENTASA [Concomitant]
     Active Substance: MESALAMINE
     Route: 048
     Dates: start: 20200811, end: 20200907
  27. PENTASA [Concomitant]
     Active Substance: MESALAMINE
     Route: 048
     Dates: start: 20200908, end: 20200930
  28. PENTASA [Concomitant]
     Active Substance: MESALAMINE
     Route: 048
     Dates: start: 20201006
  29. LOXOPROFEN SODIUM [Concomitant]
     Active Substance: LOXOPROFEN SODIUM
     Indication: Infectious mononucleosis
     Dosage: AFTER EACH MEAL
     Route: 048
     Dates: start: 20221102
  30. LOXOPROFEN SODIUM [Concomitant]
     Active Substance: LOXOPROFEN SODIUM
     Indication: Infectious mononucleosis
     Dosage: DOSE UNKNOWN
     Route: 065
     Dates: start: 20221104, end: 20221107
  31. REBAMIPIDE [Concomitant]
     Active Substance: REBAMIPIDE
     Indication: Infectious mononucleosis
     Dosage: AFTER EACH MEAL
     Route: 048
     Dates: start: 20221102
  32. HERBALS [Concomitant]
     Active Substance: HERBALS
     Indication: Infectious mononucleosis
     Dosage: DOSE UNKNOWN
     Route: 065
     Dates: start: 20221104, end: 20221107
  33. CALONAL [Concomitant]
     Active Substance: ACETAMINOPHEN
     Indication: Infectious mononucleosis
     Dosage: DOSE UNKNOWN
     Route: 065
     Dates: start: 20221104, end: 20221107
  34. AZITHROMYCIN [Concomitant]
     Active Substance: AZITHROMYCIN
     Indication: Infectious mononucleosis
     Dosage: DOSE UNKNOWN
     Route: 065
     Dates: start: 20221104, end: 20221107
  35. CEPHALORIDINE [Concomitant]
     Active Substance: CEPHALORIDINE
     Indication: Infectious mononucleosis
     Dosage: DOSE UNKNOWN
     Route: 041
     Dates: start: 20221104, end: 20221107
  36. VEEN D [Concomitant]
     Active Substance: CALCIUM CHLORIDE\DEXTROSE\POTASSIUM CHLORIDE\SODIUM ACETATE\SODIUM CHLORIDE
     Indication: Infectious mononucleosis
     Route: 042
     Dates: start: 20221107, end: 20221107
  37. ACETAMINOPHEN [Concomitant]
     Active Substance: ACETAMINOPHEN
     Indication: Infectious mononucleosis
     Route: 042
     Dates: start: 20221107, end: 20221107
  38. ELECTROLYTES NOS [Concomitant]
     Active Substance: ELECTROLYTES NOS
     Indication: Infectious mononucleosis
     Route: 042
     Dates: start: 20221107, end: 20221107
  39. ELECTROLYTES NOS [Concomitant]
     Active Substance: ELECTROLYTES NOS
     Indication: Infectious mononucleosis
     Route: 042
     Dates: start: 20221108, end: 20221108
  40. ELECTROLYTES NOS [Concomitant]
     Active Substance: ELECTROLYTES NOS
     Indication: Infectious mononucleosis
     Route: 042
     Dates: start: 20221109, end: 20221109
  41. ACETAMINOPHEN [Concomitant]
     Active Substance: ACETAMINOPHEN
     Indication: Infectious mononucleosis
     Dosage: P.R.N
     Route: 048
     Dates: start: 20221107, end: 20221107
  42. ACETAMINOPHEN [Concomitant]
     Active Substance: ACETAMINOPHEN
     Dosage: P.R.N
     Route: 048
     Dates: start: 20221108, end: 20221108
  43. BICANATE [Concomitant]
     Active Substance: CALCIUM CHLORIDE\MAGNESIUM CHLORIDE\POTASSIUM CHLORIDE\SODIUM BICARBONATE\SODIUM CHLORIDE\TRISODIUM
     Indication: Infectious mononucleosis
     Route: 042
     Dates: start: 20221107, end: 20221107
  44. BICANATE [Concomitant]
     Active Substance: CALCIUM CHLORIDE\MAGNESIUM CHLORIDE\POTASSIUM CHLORIDE\SODIUM BICARBONATE\SODIUM CHLORIDE\TRISODIUM
     Indication: Infectious mononucleosis
     Route: 042
     Dates: start: 20221108, end: 20221108
  45. BICANATE [Concomitant]
     Active Substance: CALCIUM CHLORIDE\MAGNESIUM CHLORIDE\POTASSIUM CHLORIDE\SODIUM BICARBONATE\SODIUM CHLORIDE\TRISODIUM
     Indication: Infectious mononucleosis
     Route: 042
     Dates: start: 20221109, end: 20221109
  46. NEOLAMIN 3B [CYANOCOBALAMIN;PYRIDOXINE HYDROCHLORIDE;RIBOFLAVIN;THIAMI [Concomitant]
     Indication: Infectious mononucleosis
     Dosage: 1A
     Route: 042
     Dates: start: 20221107, end: 20221107
  47. NEOLAMIN 3B [CYANOCOBALAMIN;PYRIDOXINE HYDROCHLORIDE;RIBOFLAVIN;THIAMI [Concomitant]
     Indication: Infectious mononucleosis
     Dosage: 1A
     Route: 042
     Dates: start: 20221108, end: 20221108
  48. NEOLAMIN 3B [CYANOCOBALAMIN;PYRIDOXINE HYDROCHLORIDE;RIBOFLAVIN;THIAMI [Concomitant]
     Indication: Infectious mononucleosis
     Dosage: 1A
     Route: 042
     Dates: start: 20221109, end: 20221109

REACTIONS (1)
  - Infectious mononucleosis [Recovered/Resolved]

NARRATIVE: CASE EVENT DATE: 20221031
